FAERS Safety Report 10775729 (Version 2)
Quarter: 2015Q1

REPORT INFORMATION
  Report Type: Spontaneous
  Country: IT (occurrence: IT)
  Receive Date: 20150209
  Receipt Date: 20150216
  Transmission Date: 20150721
  Serious: Yes (Other)
  Sender: FDA-Public Use
  Company Number: IT-IPSEN BIOPHARMACEUTICALS, INC.-2015-2281

PATIENT
  Age: 56 Year
  Sex: Female

DRUGS (2)
  1. IPSTYL 120MG [Suspect]
     Active Substance: LANREOTIDE ACETATE
     Indication: ACROMEGALY
     Dosage: 120MG
     Route: 065
  2. IPSTYL 120MG [Suspect]
     Active Substance: LANREOTIDE ACETATE
     Dosage: 90MG
     Route: 065

REACTIONS (2)
  - Meningioma [Unknown]
  - Headache [Unknown]
